FAERS Safety Report 8343772 (Version 2)
Quarter: 2014Q1

REPORT INFORMATION
  Report Type: Spontaneous
  Country: US (occurrence: US)
  Receive Date: 20120119
  Receipt Date: 20140110
  Transmission Date: 20141002
  Serious: Yes (Other)
  Sender: FDA-Public Use
  Company Number: US-BAYER-2012-003832

PATIENT
  Age: 30 Year
  Sex: Female

DRUGS (6)
  1. YAZ [Suspect]
     Dosage: UNK
     Dates: start: 20050110, end: 200907
  2. YASMIN [Suspect]
     Dosage: UNK
     Dates: start: 20050110, end: 200907
  3. OCELLA [Suspect]
     Dosage: UNK
     Dates: start: 20050110, end: 200907
  4. NEXIUM [Concomitant]
     Dosage: 40 MG, UNK
  5. METRONIDAZOLE [Concomitant]
     Dosage: 0.75 UNK, UNK
     Route: 067
  6. NAPROXEN [Concomitant]
     Dosage: 550 MG, UNK

REACTIONS (8)
  - Cholelithiasis [None]
  - Cholecystitis acute [None]
  - Injury [None]
  - Pain [None]
  - Emotional distress [None]
  - Anxiety [None]
  - Psychological trauma [None]
  - Fear of disease [None]
